FAERS Safety Report 19198700 (Version 2)
Quarter: 2025Q1

REPORT INFORMATION
  Report Type: Spontaneous
  Country: NL (occurrence: NL)
  Receive Date: 20210430
  Receipt Date: 20250213
  Transmission Date: 20250409
  Serious: Yes (Other)
  Sender: AUROBINDO
  Company Number: NL-PFIZER INC-2008055145

PATIENT
  Age: 51 Year
  Sex: Female
  Weight: 74 kg

DRUGS (7)
  1. IRINOTECAN [Interacting]
     Active Substance: IRINOTECAN
     Indication: Adenocarcinoma
     Route: 042
  2. IRINOTECAN [Interacting]
     Active Substance: IRINOTECAN
     Route: 042
  3. IRINOTECAN [Interacting]
     Active Substance: IRINOTECAN
     Route: 042
  4. VALPROATE SODIUM [Interacting]
     Active Substance: VALPROATE SODIUM
     Indication: Adenocarcinoma
     Dosage: 600 MILLIGRAM, ONCE A DAY (300 MG, 2X/DAY), OVER 3 YEARS
     Route: 065
  5. ATROPINE [Concomitant]
     Active Substance: ATROPINE
     Indication: Cholinergic syndrome
     Route: 065
  6. DEXAMETHASONE [Concomitant]
     Active Substance: DEXAMETHASONE
     Indication: Prophylaxis
     Route: 065
  7. GRANISETRON [Concomitant]
     Active Substance: GRANISETRON
     Indication: Prophylaxis
     Route: 065

REACTIONS (4)
  - Neutropenia [Unknown]
  - Hepatotoxicity [Unknown]
  - Neuropathy peripheral [Unknown]
  - Drug interaction [Unknown]
